FAERS Safety Report 7314830-X (Version None)
Quarter: 2011Q1

REPORT INFORMATION
  Report Type: 
  Country: None (occurrence: None)
  Receive Date: 20110225
  Receipt Date: 20110126
  Transmission Date: 20110831
  Serious: No
  Sender: FDA-Public Use
  Company Number: US-MYLANLABS-2010S1023795

PATIENT
  Age: 19 None
  Sex: Male

DRUGS (3)
  1. AMNESTEEM [Suspect]
     Indication: ACNE CYSTIC
     Route: 048
     Dates: start: 20100806, end: 20101010
  2. ZOLOFT [Concomitant]
  3. EPIDUO [Concomitant]

REACTIONS (2)
  - DEPRESSION [None]
  - BLOOD BILIRUBIN INCREASED [None]
